FAERS Safety Report 13430248 (Version 1)
Quarter: 2017Q2

REPORT INFORMATION
  Report Type: Spontaneous
  Country: US (occurrence: US)
  Receive Date: 20170411
  Receipt Date: 20170411
  Transmission Date: 20170830
  Serious: No
  Sender: FDA-Public Use
  Company Number: None

PATIENT
  Sex: Female

DRUGS (1)
  1. IBRANCE [Suspect]
     Active Substance: PALBOCICLIB
     Indication: PRODUCT USED FOR UNKNOWN INDICATION
     Dosage: DAILY FOR 21 DAYS ON. 7 DAYS OFF
     Route: 048
     Dates: start: 20170203

REACTIONS (3)
  - Vision blurred [None]
  - Nasal dryness [None]
  - Dry eye [None]
